FAERS Safety Report 6314662-5 (Version None)
Quarter: 2009Q3

REPORT INFORMATION
  Report Type: 
  Country: None (occurrence: None)
  Receive Date: 20090817
  Receipt Date: 20090817
  Transmission Date: 20100115
  Serious: Yes (Life-Threatening)
  Sender: FDA-Public Use
  Company Number: None

PATIENT
  Age: 33 Year
  Sex: Female
  Weight: 84.8226 kg

DRUGS (1)
  1. MERCURY DENTAL FILLINGS [Suspect]
     Indication: DENTAL CARIES
     Dosage: 9
     Dates: start: 19990605, end: 20090803

REACTIONS (1)
  - UNEVALUABLE EVENT [None]
